FAERS Safety Report 7813902-0 (Version None)
Quarter: 2011Q4

REPORT INFORMATION
  Report Type: 
  Country: None (occurrence: None)
  Receive Date: 20111014
  Receipt Date: 20111008
  Transmission Date: 20120403
  Serious: Yes (Other)
  Sender: FDA-Public Use
  Company Number: GB-PFIZER INC-2011241023

PATIENT

DRUGS (1)
  1. TORISEL [Suspect]
     Dosage: 25 MG, UNK

REACTIONS (1)
  - CARDIAC FAILURE [None]
